FAERS Safety Report 16876590 (Version 2)
Quarter: 2019Q4

REPORT INFORMATION
  Report Type: Spontaneous
  Country: US (occurrence: US)
  Receive Date: 20191002
  Receipt Date: 20191022
  Transmission Date: 20200122
  Serious: Yes (Other)
  Sender: FDA-Public Use
  Company Number: US-ASTRAZENECA-2019SF35763

PATIENT
  Age: 28930 Day
  Sex: Female
  Weight: 108.9 kg

DRUGS (8)
  1. HYDRALAZINE [Concomitant]
     Active Substance: HYDRALAZINE HYDROCHLORIDE
  2. ATENOLOL. [Suspect]
     Active Substance: ATENOLOL
     Route: 065
  3. PREDNISONE. [Concomitant]
     Active Substance: PREDNISONE
  4. AUGMENTIN [Concomitant]
     Active Substance: AMOXICILLIN\CLAVULANATE POTASSIUM
  5. FLOVENT [Concomitant]
     Active Substance: FLUTICASONE PROPIONATE
  6. ELIQUIS [Concomitant]
     Active Substance: APIXABAN
     Dosage: 5 BID
  7. BEVESPI AEROSPHERE [Suspect]
     Active Substance: FORMOTEROL FUMARATE\GLYCOPYRROLATE
     Indication: BRONCHITIS
     Dosage: ONE DOSE OF 2 INHALATIONS
     Route: 055
     Dates: start: 20190901, end: 20190901
  8. METFORMIN [Suspect]
     Active Substance: METFORMIN HYDROCHLORIDE
     Route: 048

REACTIONS (4)
  - Nausea [Recovered/Resolved]
  - Vomiting projectile [Recovered/Resolved]
  - Blood pressure increased [Recovered/Resolved]
  - Hypersensitivity [Recovering/Resolving]

NARRATIVE: CASE EVENT DATE: 20190901
